FAERS Safety Report 7301733-X (Version None)
Quarter: 2011Q1

REPORT INFORMATION
  Report Type: 
  Country: None (occurrence: None)
  Receive Date: 20110218
  Receipt Date: 20110214
  Transmission Date: 20110831
  Serious: Yes (Death, Congenital Anomaly)
  Sender: FDA-Public Use
  Company Number: A0687295A

PATIENT
  Sex: Male

DRUGS (5)
  1. PAXIL [Suspect]
     Indication: DEPRESSION
     Dosage: 30MG PER DAY
     Route: 064
     Dates: start: 20060316
  2. PAXIL CR [Suspect]
     Indication: DEPRESSION
     Route: 064
     Dates: start: 20061003
  3. CLARITIN [Concomitant]
  4. PAROXETINE HCL [Suspect]
     Indication: DEPRESSION
     Route: 064
     Dates: start: 20060316, end: 20060824
  5. TYLENOL [Concomitant]

REACTIONS (6)
  - HEART DISEASE CONGENITAL [None]
  - OESOPHAGEAL ATRESIA [None]
  - PULMONARY APLASIA [None]
  - STILLBIRTH [None]
  - OESOPHAGEAL FISTULA [None]
  - DRUG EXPOSURE DURING PREGNANCY [None]
